FAERS Safety Report 6177120-7 (Version None)
Quarter: 2009Q2

REPORT INFORMATION
  Report Type: 
  Country: None (occurrence: None)
  Receive Date: 20090430
  Receipt Date: 20090430
  Transmission Date: 20091009
  Serious: Yes (Other)
  Sender: FDA-Public Use
  Company Number: None

PATIENT
  Age: 28 Year
  Sex: Female
  Weight: 102.0593 kg

DRUGS (2)
  1. LEVAQUIN [Suspect]
     Indication: BACTERIA URINE
     Dosage: 750MG  DAILY PO
     Route: 048
     Dates: start: 20090423, end: 20090425
  2. LEVAQUIN [Suspect]
     Indication: BACTERIA URINE
     Dosage: 500MG DAILY PO
     Route: 048
     Dates: start: 20090426, end: 20090428

REACTIONS (2)
  - MUSCULOSKELETAL PAIN [None]
  - VULVOVAGINAL PRURITUS [None]
